FAERS Safety Report 16617375 (Version 1)
Quarter: 2019Q3

REPORT INFORMATION
  Report Type: Spontaneous
  Country: US (occurrence: US)
  Receive Date: 20190610
  Receipt Date: 20190610
  Transmission Date: 20191004
  Serious: Yes (Life-Threatening, Hospitalization, Disabling, Other)
  Sender: FDA-Public Use
  Company Number: None

PATIENT
  Age: 71 Year
  Sex: Male
  Weight: 74.39 kg

DRUGS (9)
  1. ALBUTEROL. [Suspect]
     Active Substance: ALBUTEROL
     Dosage: 1 TO 2 PUFFS
  2. TAMSULOSIN [Suspect]
     Active Substance: TAMSULOSIN
  3. FIBER LAX [Concomitant]
     Active Substance: CALCIUM POLYCARBOPHIL
  4. ASPIRIN 81 MG [Suspect]
     Active Substance: ASPIRIN
  5. POLYETHLENE GLYCOL (PEG) [Concomitant]
     Active Substance: POLYETHYLENE GLYCOLS
  6. CLOZAPINE. [Suspect]
     Active Substance: CLOZAPINE
  7. FINASTERIDE. [Suspect]
     Active Substance: FINASTERIDE
  8. HALDOL [Suspect]
     Active Substance: HALOPERIDOL
  9. SENNA ORAL [Concomitant]

REACTIONS (16)
  - Dizziness [None]
  - Unevaluable event [None]
  - Drug ineffective [None]
  - Dysstasia [None]
  - Fall [None]
  - Therapy cessation [None]
  - Dysarthria [None]
  - Cerebrovascular accident [None]
  - Joint injury [None]
  - Urinary retention [None]
  - Dyspnoea [None]
  - Incontinence [None]
  - Head injury [None]
  - Syncope [None]
  - Drug interaction [None]
  - Urinary tract infection [None]

NARRATIVE: CASE EVENT DATE: 20180206
